FAERS Safety Report 4981842-0 (Version None)
Quarter: 2006Q2

REPORT INFORMATION
  Report Type: 
  Country: None (occurrence: None)
  Receive Date: 20060421
  Receipt Date: 20060421
  Transmission Date: 20061013
  Serious: No
  Sender: FDA-Public Use
  Company Number: None

PATIENT
  Age: 9 Year
  Sex: Male
  Weight: 35 kg

DRUGS (3)
  1. LEVAQUIN [Suspect]
     Indication: DRUG HYPERSENSITIVITY
     Dosage: 350 MG Q 24 H IV
     Route: 042
     Dates: start: 20060415
  2. LEVAQUIN [Suspect]
     Indication: INJURY
     Dosage: 350 MG Q 24 H IV
     Route: 042
     Dates: start: 20060415
  3. LEVAQUIN [Suspect]
     Indication: PROPHYLAXIS
     Dosage: 350 MG Q 24 H IV
     Route: 042
     Dates: start: 20060415

REACTIONS (5)
  - ABDOMINAL PAIN UPPER [None]
  - NAUSEA [None]
  - RASH ERYTHEMATOUS [None]
  - RASH PRURITIC [None]
  - SKIN WARM [None]
